FAERS Safety Report 5897786-6 (Version None)
Quarter: 2008Q3

REPORT INFORMATION
  Report Type: 
  Country: None (occurrence: None)
  Receive Date: 20080925
  Receipt Date: 20080919
  Transmission Date: 20090109
  Serious: Yes (Death, Other)
  Sender: FDA-Public Use
  Company Number: PHBS2008TR05788

PATIENT
  Age: 76 Year
  Sex: Male

DRUGS (5)
  1. GLEEVEC [Suspect]
     Indication: CHRONIC MYELOID LEUKAEMIA
     Dosage: 400 MG/DAY
     Route: 065
  2. GLEEVEC [Suspect]
     Dosage: 200 MG/DAY
     Route: 065
  3. IRINOTECAN + 5-FU + LEUCOVORIN [Concomitant]
  4. HYDROXYUREA [Concomitant]
     Dosage: 1000 MG/DAY
  5. RADIOTHERAPY [Concomitant]

REACTIONS (4)
  - CHRONIC MYELOID LEUKAEMIA [None]
  - HAEMORRHAGE INTRACRANIAL [None]
  - THROMBOCYTOPENIA [None]
  - WHITE BLOOD CELL COUNT INCREASED [None]
